FAERS Safety Report 10902566 (Version 1)
Quarter: 2015Q1

REPORT INFORMATION
  Report Type: Spontaneous
  Country: GB (occurrence: GB)
  Receive Date: 20150310
  Receipt Date: 20150310
  Transmission Date: 20150721
  Serious: Yes (Other)
  Sender: FDA-Public Use
  Company Number: GB-ACTAVIS-2015-04397

PATIENT
  Age: 35 Year
  Sex: Female
  Weight: 63.5 kg

DRUGS (2)
  1. IBUPROFEN. [Suspect]
     Active Substance: IBUPROFEN
     Indication: TOOTHACHE
     Dosage: UNK
     Route: 048
  2. CODEINE [Suspect]
     Active Substance: CODEINE
     Indication: PRODUCT USED FOR UNKNOWN INDICATION
     Dosage: UNK
     Route: 048

REACTIONS (8)
  - Drug prescribing error [Unknown]
  - Dyspnoea [Recovered/Resolved]
  - Migraine [Not Recovered/Not Resolved]
  - Hyperhidrosis [Recovered/Resolved]
  - Abdominal discomfort [Recovering/Resolving]
  - Dizziness [Unknown]
  - Vomiting [Unknown]
  - Malaise [Recovered/Resolved]
